FAERS Safety Report 8103550-X (Version None)
Quarter: 2012Q1

REPORT INFORMATION
  Report Type: 
  Country: None (occurrence: None)
  Receive Date: 20120201
  Receipt Date: 20120126
  Transmission Date: 20120608
  Serious: Yes (Death, Other)
  Sender: FDA-Public Use
  Company Number: JP-PFIZER INC-2012010866

PATIENT
  Age: 83 Year
  Sex: Male

DRUGS (16)
  1. PYRIDOXINE HCL [Concomitant]
     Dosage: 150 MILLIGRAM/DAY
     Route: 048
  2. ELNEOPA NO.2 [Concomitant]
     Dosage: 2000 MILLILITRE/DAY
  3. PENMALIN [Concomitant]
     Dosage: 2000 MILLIGRAM/DAY
     Dates: start: 20111109, end: 20111113
  4. SODIUM CHLORIDE [Concomitant]
     Dosage: 6000 MILLIGRAM/DAY
     Route: 048
  5. CEFTAZIDIME PENTAHYDRATE [Concomitant]
     Dosage: 2000 MILLIGRAM/DAY
     Route: 042
     Dates: end: 20111109
  6. PENMALIN [Concomitant]
     Dosage: 2000 MILLIGRAM/DAY
     Dates: start: 20111121, end: 20111129
  7. NEO-MINOPHAGEN C [Concomitant]
     Dosage: 20 MILLILITRE/DAY
     Route: 042
     Dates: start: 20111110
  8. AMLODIPINE [Suspect]
     Indication: HYPERTENSION
     Dosage: 2.5 MG/DAY
     Route: 048
     Dates: start: 20111108, end: 20111203
  9. LOSARTAN POTASSIUM [Concomitant]
     Indication: HYPERTENSION
     Dosage: 25 MILLIGRAM/DAY
     Route: 048
     Dates: start: 20111108, end: 20111203
  10. RIFAMPICIN [Concomitant]
     Dosage: 300 MILLIGRAM/DAY
     Route: 048
  11. ETHAMBUTOL HYDROCHLORIDE [Concomitant]
     Dosage: 500 MILLIGRAM/DAY
     Route: 048
  12. FAMOTIDINE [Concomitant]
     Dosage: 20 MILLIGRAM/DAY
     Route: 048
  13. CLINDAMYCIN [Concomitant]
     Dosage: 600 MILLIGRAM/DAY
     Dates: start: 20111121, end: 20111124
  14. MEROPENEM [Concomitant]
     Dosage: 1000 MILLIGRAM/DAY
     Dates: start: 20111125, end: 20111129
  15. ISONIAZID [Concomitant]
     Dosage: 200 MILLIGRAM/DAY
     Route: 048
  16. MUCOSTA [Concomitant]
     Dosage: 300 MILLIGRAM/DAY
     Route: 048

REACTIONS (2)
  - CARDIAC FAILURE CONGESTIVE [None]
  - PNEUMONIA ASPIRATION [None]
